FAERS Safety Report 8140558-2 (Version None)
Quarter: 2012Q1

REPORT INFORMATION
  Report Type: 
  Country: None (occurrence: None)
  Receive Date: 20120216
  Receipt Date: 20120213
  Transmission Date: 20120608
  Serious: Yes (Other)
  Sender: FDA-Public Use
  Company Number: US-PFIZER INC-2012024943

PATIENT
  Age: 64 Year
  Sex: Male

DRUGS (2)
  1. GLUCOTROL [Suspect]
     Dosage: UNK
  2. GLUCOPHAGE [Suspect]
     Dosage: UNK

REACTIONS (1)
  - DIABETES MELLITUS INADEQUATE CONTROL [None]
